FAERS Safety Report 6740109-0 (Version None)
Quarter: 2010Q2

REPORT INFORMATION
  Report Type: 
  Country: None (occurrence: None)
  Receive Date: 20100520
  Receipt Date: 20090909
  Transmission Date: 20101027
  Serious: Yes (Other)
  Sender: FDA-Public Use
  Company Number: 2009246540

PATIENT
  Age: 12 Year
  Sex: Female
  Weight: 58.8 kg

DRUGS (2)
  1. DEPO-PROVERA [Suspect]
     Indication: MENORRHAGIA
     Dates: start: 20090402
  2. DEPO-PROVERA [Suspect]
     Indication: OFF LABEL USE
     Dates: start: 20090402

REACTIONS (1)
  - DRUG INEFFECTIVE FOR UNAPPROVED INDICATION [None]
